FAERS Safety Report 8473367-5 (Version None)
Quarter: 2012Q2

REPORT INFORMATION
  Report Type: 
  Country: None (occurrence: None)
  Receive Date: 20120628
  Receipt Date: 20120619
  Transmission Date: 20120825
  Serious: Yes (Hospitalization)
  Sender: FDA-Public Use
  Company Number: US-BIOGENIDEC-2012BI011178

PATIENT
  Age: 65 Year
  Sex: Female

DRUGS (2)
  1. AVONEX [Suspect]
     Route: 030
     Dates: start: 20030101
  2. AVONEX [Suspect]
     Indication: MULTIPLE SCLEROSIS
     Route: 030
     Dates: start: 19990627, end: 20030101

REACTIONS (16)
  - FALL [None]
  - APHAGIA [None]
  - MOBILITY DECREASED [None]
  - MUSCULAR WEAKNESS [None]
  - ASTHENIA [None]
  - STRESS [None]
  - HAEMOGLOBIN DECREASED [None]
  - NAUSEA [None]
  - BLOOD COUNT ABNORMAL [None]
  - WEIGHT DECREASED [None]
  - RETCHING [None]
  - GAIT DISTURBANCE [None]
  - MULTIPLE SCLEROSIS RELAPSE [None]
  - WRIST FRACTURE [None]
  - GASTRITIS [None]
  - BLOOD IRON DECREASED [None]
